FAERS Safety Report 8172635-4 (Version None)
Quarter: 2012Q1

REPORT INFORMATION
  Report Type: 
  Country: None (occurrence: None)
  Receive Date: 20120229
  Receipt Date: 20120217
  Transmission Date: 20120608
  Serious: Yes (Life-Threatening, Hospitalization, Disabling, Congenital Anomaly, Other)
  Sender: FDA-Public Use
  Company Number: JP-SANOFI-AVENTIS-2012SA007246

PATIENT
  Age: 0 Day
  Sex: Male
  Weight: 3.5 kg

DRUGS (6)
  1. PRANLUKAST [Concomitant]
     Route: 064
  2. CANDESARTAN CILEXETIL [Suspect]
     Route: 064
  3. PIOGLITAZONE [Suspect]
     Route: 064
  4. BENIDIPINE HYDROCHLORIDE [Concomitant]
     Route: 064
  5. AMARYL [Suspect]
     Route: 064
  6. THEOPHYLLINE [Concomitant]
     Route: 064

REACTIONS (6)
  - PULMONARY HYPOPLASIA [None]
  - FOETAL EXPOSURE DURING PREGNANCY [None]
  - NEONATAL ASPHYXIA [None]
  - HYPOGLYCAEMIA NEONATAL [None]
  - RENAL FAILURE [None]
  - LIMB HYPOPLASIA CONGENITAL [None]
